FAERS Safety Report 25929856 (Version 1)
Quarter: 2025Q4

REPORT INFORMATION
  Report Type: Spontaneous
  Country: BR (occurrence: BR)
  Receive Date: 20251016
  Receipt Date: 20251016
  Transmission Date: 20260117
  Serious: Yes (Other)
  Sender: SANOFI AVENTIS
  Company Number: BR-SA-2025SA305744

PATIENT
  Age: 32 Year

DRUGS (3)
  1. DUPIXENT [Suspect]
     Active Substance: DUPILUMAB
     Indication: Eosinophilic oesophagitis
     Dosage: UNK
  2. DUPIXENT [Suspect]
     Active Substance: DUPILUMAB
     Indication: Asthma
  3. PULMICORT TURBUHALER [Concomitant]
     Active Substance: BUDESONIDE
     Dosage: UNK

REACTIONS (7)
  - Uveitis [Unknown]
  - Sarcoidosis [Unknown]
  - Hypertension [Unknown]
  - Myalgia [Unknown]
  - Pruritus [Unknown]
  - Skin exfoliation [Unknown]
  - Rash [Unknown]

NARRATIVE: CASE EVENT DATE: 20250101
